FAERS Safety Report 16797999 (Version 1)
Quarter: 2019Q3

REPORT INFORMATION
  Report Type: Spontaneous
  Country: IT (occurrence: IT)
  Receive Date: 20190912
  Receipt Date: 20190912
  Transmission Date: 20191005
  Serious: Yes (Other)
  Sender: FDA-Public Use
  Company Number: IT-TEVA-2019-IT-1105836

PATIENT
  Age: 47 Year
  Sex: Female

DRUGS (1)
  1. PALIPERIDONE. [Suspect]
     Active Substance: PALIPERIDONE
     Dosage: 6 MILLIGRAM
     Route: 048

REACTIONS (4)
  - Dysphagia [Recovered/Resolved]
  - Tremor [Recovered/Resolved]
  - Respiratory tract infection [Recovered/Resolved]
  - Balance disorder [Recovered/Resolved]

NARRATIVE: CASE EVENT DATE: 20190728
